FAERS Safety Report 9288946 (Version 1)
Quarter: 2013Q2

REPORT INFORMATION
  Report Type: Spontaneous
  Country: FR (occurrence: FR)
  Receive Date: 20130514
  Receipt Date: 20130514
  Transmission Date: 20140414
  Serious: Yes (Life-Threatening, Other)
  Sender: FDA-Public Use
  Company Number: FR-GENZYME-THYM-1003791

PATIENT
  Age: 57 Year
  Sex: Female

DRUGS (21)
  1. THYMOGLOBULINE [Suspect]
     Indication: LIVER TRANSPLANT
     Dosage: 75 MG, SINGLE DOSE
     Route: 042
     Dates: start: 20130401, end: 20130401
  2. TEGELINE [Suspect]
     Indication: RENAL TRANSPLANT
     Dosage: 40 G, UNK (DAY 1)
     Route: 042
     Dates: start: 20130401, end: 20130401
  3. TEGELINE [Suspect]
     Dosage: 50 MG, UNK (DAY 2 TO 4)
     Route: 042
     Dates: start: 20130402, end: 20130404
  4. SOLU MEDROL [Concomitant]
     Indication: PRODUCT USED FOR UNKNOWN INDICATION
     Dosage: 350 MG, QD (DAY 1 AND 2)
     Route: 065
     Dates: start: 20130401, end: 20130402
  5. ZOVIRAX [Concomitant]
     Indication: PRODUCT USED FOR UNKNOWN INDICATION
     Dosage: 400 MG, QD (DAY1 AND 2)
     Route: 042
     Dates: start: 20130401, end: 20130402
  6. INEXIUM [Concomitant]
     Indication: PRODUCT USED FOR UNKNOWN INDICATION
     Dosage: 40 MG, QD (DAY1 AND 2)
     Route: 042
     Dates: start: 20130401, end: 20130402
  7. MORPHINE [Concomitant]
     Indication: PRODUCT USED FOR UNKNOWN INDICATION
     Dosage: 5 MG, UNK (DAY 1 AND 2)
     Route: 058
     Dates: start: 20130401, end: 20130402
  8. ACUPAN [Concomitant]
     Indication: PRODUCT USED FOR UNKNOWN INDICATION
     Dosage: 100 MG, QD (DAY 1 AND 2)
     Route: 065
     Dates: start: 20130401, end: 20130402
  9. CONTRAMAL [Concomitant]
     Indication: PRODUCT USED FOR UNKNOWN INDICATION
     Dosage: 50 MG, UNK (DAY 1 AND 2)
     Route: 042
     Dates: start: 20130401, end: 20130402
  10. PROGRAF [Concomitant]
     Indication: PRODUCT USED FOR UNKNOWN INDICATION
     Dosage: 0.5 MG, BID (DAY 1 AND 2)
     Route: 065
     Dates: start: 20130401, end: 20130402
  11. CELLCEPT [Concomitant]
     Indication: PRODUCT USED FOR UNKNOWN INDICATION
     Dosage: 1.5 G, QD (DAY 1 AND 2)
     Route: 065
     Dates: start: 20130401, end: 20130402
  12. SECTRAL [Concomitant]
     Indication: PRODUCT USED FOR UNKNOWN INDICATION
     Dosage: 0.5 MG, BID (DAY 3)
     Route: 065
     Dates: start: 20130403
  13. EUPRESSYL [Concomitant]
     Indication: PRODUCT USED FOR UNKNOWN INDICATION
     Dosage: 60 MG, UNK (DAY 3)
     Route: 065
     Dates: start: 20130403
  14. CRESTOR [Concomitant]
     Indication: PRODUCT USED FOR UNKNOWN INDICATION
     Dosage: 10 MG, UNK (DAY 3)
     Route: 065
     Dates: start: 20130403
  15. ATARAX [Concomitant]
     Indication: PRODUCT USED FOR UNKNOWN INDICATION
     Dosage: 75 MG, UNK (DAY 3)
     Route: 065
     Dates: start: 20130403
  16. CALCIPARIN [Concomitant]
     Indication: PRODUCT USED FOR UNKNOWN INDICATION
     Dosage: 0.3 ML, BID (DAY 3)
     Route: 065
     Dates: start: 20130403
  17. RED BLOOD CELLS [Concomitant]
     Indication: PRODUCT USED FOR UNKNOWN INDICATION
     Dosage: 3 U, UNK
     Route: 065
  18. CELL SAVER [Concomitant]
     Indication: PRODUCT USED FOR UNKNOWN INDICATION
     Dosage: 500 ML, (3 UNITS)
     Route: 065
  19. NORADRENALIN [Concomitant]
     Indication: SEDATION
     Dosage: UNK
     Route: 065
  20. SUFENTANIL [Concomitant]
     Indication: SEDATION
     Dosage: UNK
     Route: 065
  21. HYPNOVEL [Concomitant]
     Indication: SEDATION
     Dosage: UNK
     Route: 065

REACTIONS (5)
  - Renal tubular necrosis [Not Recovered/Not Resolved]
  - Shock haemorrhagic [Unknown]
  - Escherichia sepsis [Unknown]
  - Klebsiella sepsis [Unknown]
  - Pyelonephritis acute [Unknown]
